FAERS Safety Report 22536806 (Version 15)
Quarter: 2023Q4

REPORT INFORMATION
  Report Type: Report from Study
  Country: BR (occurrence: BR)
  Receive Date: 20230608
  Receipt Date: 20231122
  Transmission Date: 20240109
  Serious: Yes (Hospitalization)
  Sender: FDA-Public Use
  Company Number: BR-AKCEA THERAPEUTICS, INC.-2023IS001025

PATIENT

DRUGS (17)
  1. TEGSEDI [Suspect]
     Active Substance: INOTERSEN SODIUM
     Indication: Hereditary neuropathic amyloidosis
     Dosage: 284 MILLIGRAM, QW
     Route: 058
     Dates: start: 20230405, end: 20230525
  2. TEGSEDI [Suspect]
     Active Substance: INOTERSEN SODIUM
     Dosage: UNK
     Route: 065
     Dates: start: 20230111
  3. TEGSEDI [Suspect]
     Active Substance: INOTERSEN SODIUM
     Dosage: 284 MILLIGRAM, QW
     Route: 058
  4. TEGSEDI [Suspect]
     Active Substance: INOTERSEN SODIUM
     Dosage: 284 MILLIGRAM, QW (1.5 ML)
     Route: 058
     Dates: start: 20220425, end: 20230524
  5. TEGSEDI [Suspect]
     Active Substance: INOTERSEN SODIUM
     Dosage: UNK, QW 1 SYRINGE
     Route: 058
     Dates: start: 20220405, end: 20230104
  6. CARVEDILOL [Suspect]
     Active Substance: CARVEDILOL
     Indication: Petechiae
     Dosage: 6.5 MILLIGRAM, BID (IN THE MORNING AND AT NIGHT)
     Route: 065
     Dates: start: 202301
  7. CARVEDILOL [Suspect]
     Active Substance: CARVEDILOL
     Dosage: 12.5 MILLIGRAM
     Route: 065
  8. CARVEDILOL [Suspect]
     Active Substance: CARVEDILOL
     Dosage: UNK
     Route: 065
  9. CARVEDILOL [Suspect]
     Active Substance: CARVEDILOL
     Dosage: 12.5 MILLIGRAM
     Route: 065
  10. FUROSEMIDE [Concomitant]
     Active Substance: FUROSEMIDE
     Indication: Arrhythmia
     Dosage: 40 MILLIGRAM, QD ONE 40 MG TABLET IN THE MORNING AND HALF A TABLET AT NIGHT
     Route: 065
     Dates: start: 2019
  11. SPIRONOLACTONE [Concomitant]
     Active Substance: SPIRONOLACTONE
     Indication: Product used for unknown indication
     Dosage: 25 MILLIGRAM
     Route: 065
  12. SIMVASTATIN [Concomitant]
     Active Substance: SIMVASTATIN
     Indication: Product used for unknown indication
     Dosage: 40 MILLIGRAM, QD AT NIGHT
     Route: 065
  13. PREDNISOLONE [Concomitant]
     Active Substance: PREDNISOLONE
     Indication: Product used for unknown indication
     Dosage: 20 MILLIGRAM
     Route: 065
     Dates: start: 202102
  14. LOPERAMIDE [Concomitant]
     Active Substance: LOPERAMIDE
     Indication: Product used for unknown indication
     Dosage: UNK
     Route: 065
  15. SULFADIAZINE [Concomitant]
     Active Substance: SULFADIAZINE
     Indication: Product used for unknown indication
     Dosage: UNK
     Route: 065
  16. AVIDE [Concomitant]
     Indication: Product used for unknown indication
     Dosage: TABLET EVERY 8 HOURS
     Route: 065
  17. PROBID [Concomitant]
     Indication: Product used for unknown indication
     Dosage: UNK
     Route: 065

REACTIONS (80)
  - Abdominal pain [Not Recovered/Not Resolved]
  - Thrombocytopenia [Recovered/Resolved]
  - Heart rate irregular [Unknown]
  - Contusion [Not Recovered/Not Resolved]
  - Pain [Not Recovered/Not Resolved]
  - Blister [Not Recovered/Not Resolved]
  - Burning sensation [Not Recovered/Not Resolved]
  - Infection [Not Recovered/Not Resolved]
  - Fatigue [Not Recovered/Not Resolved]
  - Pruritus [Not Recovered/Not Resolved]
  - Asthenia [Not Recovered/Not Resolved]
  - Rash macular [Not Recovered/Not Resolved]
  - Arthropod bite [Recovered/Resolved]
  - Weight decreased [Not Recovered/Not Resolved]
  - Hypoglycaemia [Recovered/Resolved]
  - Renal failure [Recovered/Resolved]
  - Disorientation [Recovered/Resolved]
  - Hypotension [Recovered/Resolved]
  - Erythema [Not Recovered/Not Resolved]
  - Nail discomfort [Recovered/Resolved]
  - Ingrowing nail [Recovered/Resolved]
  - Diarrhoea [Recovered/Resolved]
  - Eating disorder [Unknown]
  - Dehydration [Recovering/Resolving]
  - Gastrointestinal bacterial infection [Unknown]
  - Abnormal faeces [Unknown]
  - Contusion [Recovered/Resolved]
  - Immunodeficiency [Unknown]
  - Poor venous access [Unknown]
  - Blood pressure abnormal [Unknown]
  - Haematoma [Not Recovered/Not Resolved]
  - Influenza [Recovered/Resolved]
  - Diarrhoea [Recovered/Resolved]
  - Influenza [Recovered/Resolved]
  - Fatigue [Not Recovered/Not Resolved]
  - Diarrhoea [Recovered/Resolved]
  - COVID-19 [Recovered/Resolved with Sequelae]
  - Heart rate increased [Not Recovered/Not Resolved]
  - Peripheral swelling [Recovered/Resolved]
  - Decreased appetite [Recovered/Resolved]
  - Platelet count decreased [Recovered/Resolved]
  - Peripheral swelling [Recovered/Resolved]
  - Muscular weakness [Not Recovered/Not Resolved]
  - Arrhythmia [Not Recovered/Not Resolved]
  - Joint stiffness [Recovered/Resolved]
  - Gait inability [Unknown]
  - Fall [Not Recovered/Not Resolved]
  - Injury [Not Recovered/Not Resolved]
  - Bedridden [Not Recovered/Not Resolved]
  - Product dose omission issue [Recovered/Resolved]
  - Back pain [Not Recovered/Not Resolved]
  - Confusional state [Not Recovered/Not Resolved]
  - Condition aggravated [Not Recovered/Not Resolved]
  - Skin atrophy [Not Recovered/Not Resolved]
  - Illness [Recovered/Resolved]
  - Dyspnoea [Recovered/Resolved]
  - Eating disorder [Recovered/Resolved]
  - Eating disorder [Recovered/Resolved]
  - Eating disorder [Recovered/Resolved]
  - Gait disturbance [Not Recovered/Not Resolved]
  - Decreased appetite [Not Recovered/Not Resolved]
  - Peripheral swelling [Recovered/Resolved]
  - Pain in extremity [Recovered/Resolved]
  - Dry skin [Not Recovered/Not Resolved]
  - pH urine decreased [Unknown]
  - Nausea [Not Recovered/Not Resolved]
  - Salivary hypersecretion [Not Recovered/Not Resolved]
  - Diarrhoea [Recovered/Resolved]
  - Anaemia [Not Recovered/Not Resolved]
  - Diarrhoea [Recovered/Resolved]
  - Decreased appetite [Recovered/Resolved]
  - Sarcopenia [Unknown]
  - Vomiting [Recovered/Resolved]
  - Bacterial infection [Unknown]
  - Skin mass [Not Recovered/Not Resolved]
  - Dysuria [Recovered/Resolved]
  - Testicular disorder [Recovered/Resolved]
  - Testicular pain [Not Recovered/Not Resolved]
  - Polyuria [Not Recovered/Not Resolved]
  - Groin pain [Recovered/Resolved]

NARRATIVE: CASE EVENT DATE: 20220901
